FAERS Safety Report 4707502-9 (Version None)
Quarter: 2005Q3

REPORT INFORMATION
  Report Type: 
  Country: None (occurrence: None)
  Receive Date: 20050706
  Receipt Date: 20050628
  Transmission Date: 20060218
  Serious: Yes (Other)
  Sender: FDA-Public Use
  Company Number: PHEH2005US07298

PATIENT
  Age: 75 Year
  Sex: Male

DRUGS (6)
  1. GLEEVEC [Suspect]
     Indication: CHRONIC MYELOID LEUKAEMIA
     Dosage: 400 MG, QD
     Route: 048
     Dates: start: 20000401, end: 20050610
  2. HYDREA [Concomitant]
     Route: 048
  3. AGRYLIN [Concomitant]
     Route: 048
  4. PROCRIT [Concomitant]
  5. FLOMAX [Concomitant]
     Route: 048
  6. ATIVAN [Concomitant]

REACTIONS (2)
  - ALVEOLAR PROTEINOSIS [None]
  - LUNG INFILTRATION [None]
